FAERS Safety Report 6870589-1 (Version None)
Quarter: 2010Q3

REPORT INFORMATION
  Report Type: 
  Country: None (occurrence: None)
  Receive Date: 20100723
  Receipt Date: 20100713
  Transmission Date: 20110219
  Serious: Yes (Other)
  Sender: FDA-Public Use
  Company Number: US-TYCO HEALTHCARE/MALLINCKRODT-T201001627

PATIENT
  Sex: Male

DRUGS (7)
  1. OPTIMARK [Suspect]
     Indication: NUCLEAR MAGNETIC RESONANCE IMAGING
     Dosage: UNK
     Dates: start: 20050630, end: 20050630
  2. OMNISCAN [Suspect]
     Dosage: UNK
  3. MAGNEVIST [Suspect]
     Dosage: UNK
  4. PROHANCE [Suspect]
     Dosage: UNK
  5. MULTIHANCE [Suspect]
     Dosage: UNK
  6. SIROLIMUS [Concomitant]
     Indication: PROPHYLAXIS AGAINST TRANSPLANT REJECTION
     Dosage: UNK
     Dates: start: 20050613
  7. MYCOPHENOLATE MOFETIL [Concomitant]
     Indication: PROPHYLAXIS AGAINST TRANSPLANT REJECTION
     Dosage: UNK
     Dates: start: 20050613

REACTIONS (4)
  - COAGULOPATHY [None]
  - NEPHROGENIC SYSTEMIC FIBROSIS [None]
  - OFF LABEL USE [None]
  - PYREXIA [None]
